FAERS Safety Report 20695145 (Version 2)
Quarter: 2022Q2

REPORT INFORMATION
  Report Type: Other
  Country: US (occurrence: US)
  Receive Date: 20220411
  Receipt Date: 20220608
  Transmission Date: 20220721
  Serious: Yes (Death, Congenital Anomaly, Other)
  Sender: FDA-Public Use
  Company Number: US-Covis Pharma GmbH-2022COV01028

PATIENT

DRUGS (1)
  1. MAKENA [Suspect]
     Active Substance: HYDROXYPROGESTERONE CAPROATE
     Indication: Foetal exposure during pregnancy
     Route: 064
     Dates: start: 20220321, end: 20220328

REACTIONS (1)
  - Exomphalos [Not Recovered/Not Resolved]

NARRATIVE: CASE EVENT DATE: 20220101
